FAERS Safety Report 5160803-5 (Version None)
Quarter: 2006Q4

REPORT INFORMATION
  Report Type: 
  Country: None (occurrence: None)
  Receive Date: 20060919
  Receipt Date: 20060706
  Transmission Date: 20070319
  Serious: No
  Sender: FDA-Public Use
  Company Number: BDI-008412

PATIENT
  Age: 47 Year
  Sex: Male

DRUGS (2)
  1. MULTIHANCE [Suspect]
     Indication: CARDIOMYOPATHY
     Dosage: 40 ML ONCE IV
     Route: 042
     Dates: start: 20060703, end: 20060703
  2. MULTIHANCE [Suspect]
     Indication: NUCLEAR MAGNETIC RESONANCE IMAGING
     Dosage: 40 ML ONCE IV
     Route: 042
     Dates: start: 20060703, end: 20060703

REACTIONS (2)
  - NAUSEA [None]
  - VOMITING [None]
